FAERS Safety Report 11993235 (Version 1)
Quarter: 2016Q1

REPORT INFORMATION
  Report Type: Spontaneous
  Country: US (occurrence: None)
  Receive Date: 20160202
  Receipt Date: 20160202
  Transmission Date: 20160526
  Serious: No
  Sender: FDA-Public Use
  Company Number: None

PATIENT
  Age: 59 Year
  Sex: Female

DRUGS (1)
  1. TECFIDERA [Suspect]
     Active Substance: DIMETHYL FUMARATE
     Indication: MULTIPLE SCLEROSIS
     Route: 048
     Dates: start: 20160101, end: 20160127

REACTIONS (15)
  - Constipation [None]
  - Pyrexia [None]
  - Vision blurred [None]
  - Contusion [None]
  - Erythema [None]
  - Confusional state [None]
  - Furuncle [None]
  - Hyperhidrosis [None]
  - Chills [None]
  - Urticaria [None]
  - Dry mouth [None]
  - Rash [None]
  - Pruritus [None]
  - Asthenia [None]
  - Depressed level of consciousness [None]

NARRATIVE: CASE EVENT DATE: 20160127
